FAERS Safety Report 7853545-6 (Version None)
Quarter: 2011Q4

REPORT INFORMATION
  Report Type: 
  Country: None (occurrence: None)
  Receive Date: 20111026
  Receipt Date: 20111015
  Transmission Date: 20120403
  Serious: Yes (Hospitalization, Other)
  Sender: FDA-Public Use
  Company Number: US-BAYER-201010032NA

PATIENT
  Age: 20 Year
  Sex: Female
  Weight: 59.091 kg

DRUGS (11)
  1. ZYRTEC [Concomitant]
     Indication: HYPERSENSITIVITY
  2. IBUPROFEN [Concomitant]
     Indication: PAIN
     Dosage: TWO 200 MG TABLETS
  3. ZELNORM [Concomitant]
     Dosage: UNK
     Dates: start: 20051201
  4. PERCOCET [Concomitant]
  5. IMITREX [Concomitant]
     Dosage: UNK
     Dates: start: 20051201
  6. ASPIRIN [Concomitant]
     Dosage: UNK
     Dates: start: 20051201
  7. YASMIN [Suspect]
     Indication: ACNE
     Route: 048
     Dates: start: 20040901, end: 20051101
  8. YASMIN [Suspect]
     Dates: start: 20030101, end: 20080101
  9. ASCORBIC ACID [Concomitant]
     Dosage: 500 MG DAILY
  10. DHE [DIHYDROERGOTAMINE MESILATE] [Concomitant]
     Dosage: UNK
     Dates: start: 20051201
  11. YASMIN [Suspect]
     Dates: start: 20010101, end: 20050101

REACTIONS (3)
  - SUPERIOR SAGITTAL SINUS THROMBOSIS [None]
  - JUGULAR VEIN THROMBOSIS [None]
  - CEREBRAL VENOUS THROMBOSIS [None]
